FAERS Safety Report 14765779 (Version 6)
Quarter: 2018Q3

REPORT INFORMATION
  Report Type: Spontaneous
  Country: US (occurrence: US)
  Receive Date: 20180416
  Receipt Date: 20180813
  Transmission Date: 20181010
  Serious: Yes (Hospitalization, Disabling, Other)
  Sender: FDA-Public Use
  Company Number: US-009507513-1804USA005509

PATIENT
  Sex: Female

DRUGS (2)
  1. FOSAMAX [Suspect]
     Active Substance: ALENDRONATE SODIUM
     Indication: BONE DENSITY ABNORMAL
     Dosage: ONCE A WEEK
     Route: 048
     Dates: start: 200201, end: 201407
  2. FOSAMAX [Suspect]
     Active Substance: ALENDRONATE SODIUM
     Indication: OSTEOPOROSIS PROPHYLAXIS

REACTIONS (13)
  - Hypoaesthesia oral [Recovering/Resolving]
  - Scar pain [Recovering/Resolving]
  - Pain [Not Recovered/Not Resolved]
  - Sensitivity of teeth [Recovering/Resolving]
  - Pain in jaw [Unknown]
  - Tooth disorder [Unknown]
  - Hypoaesthesia [Not Recovered/Not Resolved]
  - Tooth extraction [Recovering/Resolving]
  - Infection [Not Recovered/Not Resolved]
  - Bite [Unknown]
  - Scar [Recovering/Resolving]
  - Osteonecrosis of jaw [Not Recovered/Not Resolved]
  - Paraesthesia [Not Recovered/Not Resolved]

NARRATIVE: CASE EVENT DATE: 2014
